FAERS Safety Report 24551246 (Version 1)
Quarter: 2024Q4

REPORT INFORMATION
  Report Type: Spontaneous
  Country: IT (occurrence: IT)
  Receive Date: 20241025
  Receipt Date: 20241025
  Transmission Date: 20250115
  Serious: No
  Sender: JAZZ
  Company Number: IT-ALEXION PHARMACEUTICALS INC-A201807235

PATIENT
  Age: 9 Month
  Sex: Male

DRUGS (7)
  1. DEFITELIO [Suspect]
     Active Substance: DEFIBROTIDE SODIUM
     Indication: Prophylaxis
     Dosage: 25 MILLIGRAM/KILOGRAM, QID
     Route: 042
  2. DEFITELIO [Suspect]
     Active Substance: DEFIBROTIDE SODIUM
     Indication: Venoocclusive disease
  3. RITUXIMAB [Concomitant]
     Active Substance: RITUXIMAB
     Indication: Anti-platelet antibody
     Dosage: 375 MILLIGRAM/SQ. METER, QW
  4. RITUXIMAB [Concomitant]
     Active Substance: RITUXIMAB
     Indication: Anti-complement antibody
  5. SOLIRIS [Concomitant]
     Active Substance: ECULIZUMAB
     Indication: Atypical haemolytic uraemic syndrome
     Dosage: 300 MG, QW, STARTED ON DAY +40
  6. BUSULFAN [Concomitant]
     Active Substance: BUSULFAN
     Indication: Stem cell transplant
     Dosage: 375 MILLIGRAM/SQ. METER, QD
     Route: 042
  7. BUSULFAN [Concomitant]
     Active Substance: BUSULFAN
     Dosage: 80 MILLIGRAM/SQ. METER, QID
     Route: 042

REACTIONS (1)
  - Off label use [Unknown]
